FAERS Safety Report 20819956 (Version 2)
Quarter: 2022Q2

REPORT INFORMATION
  Report Type: Report from Study
  Country: CO (occurrence: CO)
  Receive Date: 20220512
  Receipt Date: 20220516
  Transmission Date: 20220721
  Serious: Yes (Hospitalization, Other)
  Sender: FDA-Public Use
  Company Number: CO-NOVARTISPH-NVSC2022CO108311

PATIENT
  Sex: Female

DRUGS (2)
  1. ELTROMBOPAG OLAMINE [Suspect]
     Active Substance: ELTROMBOPAG OLAMINE
     Indication: Aplastic anaemia
     Dosage: 100 MG (4 TABLETS OF 25 MG DAILY)
     Route: 048
  2. ELTROMBOPAG OLAMINE [Suspect]
     Active Substance: ELTROMBOPAG OLAMINE
     Dosage: 100 MG (25 MG IN THE MORNING, 25 MG IN THE AFTERNOON AND 50 MG IN THE EVENING)
     Route: 048

REACTIONS (5)
  - Inappropriate schedule of product administration [Unknown]
  - Renal injury [Unknown]
  - Liver injury [Unknown]
  - Depressed mood [Unknown]
  - Contusion [Unknown]
